FAERS Safety Report 7825342-9 (Version None)
Quarter: 2011Q4

REPORT INFORMATION
  Report Type: 
  Country: None (occurrence: None)
  Receive Date: 20111019
  Receipt Date: 20110916
  Transmission Date: 20120403
  Serious: Yes (Other)
  Sender: FDA-Public Use
  Company Number: PHHY2011BR86368

PATIENT
  Age: 78 Year
  Sex: Male

DRUGS (6)
  1. ATORVASTATIN [Concomitant]
     Dosage: 20 MG, QD
  2. RAMIPRIL [Suspect]
     Dosage: 5 MG, QD
     Route: 048
  3. CARVEDILOL [Concomitant]
     Dosage: 12.5 MG, BID
  4. SPIRONOLACTONE [Concomitant]
     Dosage: 25 MG, QD
  5. ASPIRIN [Concomitant]
     Dosage: 100 MG, QD
  6. FUROSEMIDE [Concomitant]
     Dosage: 40 MG, QD

REACTIONS (3)
  - VENTRICULAR DYSSYNCHRONY [None]
  - CARDIAC FAILURE [None]
  - DRUG INEFFECTIVE [None]
